FAERS Safety Report 7825556-8 (Version None)
Quarter: 2011Q4

REPORT INFORMATION
  Report Type: 
  Country: None (occurrence: None)
  Receive Date: 20111017
  Receipt Date: 20111006
  Transmission Date: 20120403
  Serious: Yes (Hospitalization, Other)
  Sender: FDA-Public Use
  Company Number: ACO_26995_2011

PATIENT
  Age: 49 Year
  Sex: Female

DRUGS (5)
  1. AMPYRA [Suspect]
     Indication: GAIT DISTURBANCE
     Dosage: 10 MG, BID,
     Dates: start: 20110301, end: 20110718
  2. METHADONE HCL [Concomitant]
  3. BACLOFEN [Concomitant]
  4. AMANTADINE HCL [Concomitant]
  5. BETASERON [Concomitant]

REACTIONS (11)
  - CONVULSION [None]
  - FUNGAL INFECTION [None]
  - URINARY TRACT INFECTION [None]
  - DECUBITUS ULCER [None]
  - LETHARGY [None]
  - BLOOD CALCIUM INCREASED [None]
  - GAIT DISTURBANCE [None]
  - LUNG INFECTION [None]
  - NAUSEA [None]
  - DIZZINESS [None]
  - MALAISE [None]
